FAERS Safety Report 23524601 (Version 2)
Quarter: 2024Q1

REPORT INFORMATION
  Report Type: Spontaneous
  Country: GB (occurrence: GB)
  Receive Date: 20240215
  Receipt Date: 20240222
  Transmission Date: 20240410
  Serious: Yes (Other)
  Sender: FDA-Public Use
  Company Number: None

PATIENT
  Age: 51 Year
  Sex: Female
  Weight: 98 kg

DRUGS (18)
  1. PIOGLITAZONE [Suspect]
     Active Substance: PIOGLITAZONE
     Indication: Product used for unknown indication
     Route: 065
  2. QVAR [Concomitant]
     Active Substance: BECLOMETHASONE DIPROPIONATE
  3. ATORVASTATIN [Concomitant]
     Active Substance: ATORVASTATIN
  4. CHOLECALCIFEROL [Concomitant]
     Active Substance: CHOLECALCIFEROL
  5. BISOPROLOL [Concomitant]
     Active Substance: BISOPROLOL\BISOPROLOL FUMARATE
  6. ROPINIROLE [Concomitant]
     Active Substance: ROPINIROLE
  7. KEPPRA [Concomitant]
     Active Substance: LEVETIRACETAM
  8. GABAPENTIN [Concomitant]
     Active Substance: GABAPENTIN
  9. FUROSEMIDE [Concomitant]
     Active Substance: FUROSEMIDE
  10. VICTOZA [Concomitant]
     Active Substance: LIRAGLUTIDE
  11. ZOPICLONE [Concomitant]
     Active Substance: ZOPICLONE
  12. METFORMIN [Concomitant]
     Active Substance: METFORMIN HYDROCHLORIDE
  13. PAROXETINE [Concomitant]
     Active Substance: PAROXETINE
  14. TOUJEO [Concomitant]
     Active Substance: INSULIN GLARGINE
  15. TRIMETHOPRIM [Concomitant]
     Active Substance: TRIMETHOPRIM
  16. CARBOCYSTEINE [Concomitant]
     Active Substance: CARBOCYSTEINE
  17. SIMVASTATIN [Concomitant]
     Active Substance: SIMVASTATIN
  18. SENNA [Concomitant]
     Active Substance: SENNA LEAF\SENNOSIDES\SENNOSIDES A AND B

REACTIONS (4)
  - Cardiac failure [Not Recovered/Not Resolved]
  - Dyspnoea [Recovered/Resolved with Sequelae]
  - Peripheral swelling [Recovering/Resolving]
  - Weight increased [Not Recovered/Not Resolved]
